FAERS Safety Report 13641797 (Version 1)
Quarter: 2017Q2

REPORT INFORMATION
  Report Type: Report from Study
  Country: BR (occurrence: BR)
  Receive Date: 20170612
  Receipt Date: 20170612
  Transmission Date: 20170830
  Serious: Yes (Death, Other)
  Sender: FDA-Public Use
  Company Number: PHHY2017BR085991

PATIENT
  Age: 90 Year
  Sex: Female
  Weight: 62 kg

DRUGS (1)
  1. DIOVAN HCT [Suspect]
     Active Substance: HYDROCHLOROTHIAZIDE\VALSARTAN
     Indication: HYPERTENSION
     Dosage: 1 DF (HYDROCHLOROTHIAZIDE 12.5/VALSARTAN 160 MG), QD
     Route: 048
     Dates: start: 2006

REACTIONS (5)
  - Death [Fatal]
  - Pneumonia [Unknown]
  - Femur fracture [Unknown]
  - Fall [Unknown]
  - Infection [Unknown]

NARRATIVE: CASE EVENT DATE: 20170514
